FAERS Safety Report 6462470-7 (Version None)
Quarter: 2009Q4

REPORT INFORMATION
  Report Type: 
  Country: None (occurrence: None)
  Receive Date: 20091130
  Receipt Date: 20091026
  Transmission Date: 20100525
  Serious: No
  Sender: FDA-Public Use
  Company Number: US-BAYER-200916121BCC

PATIENT
  Age: 55 Year
  Sex: Female
  Weight: 133 kg

DRUGS (7)
  1. ALEVE [Suspect]
     Indication: BACK PAIN
     Dosage: TOTAL DAILY DOSE: 440 MG  UNIT DOSE: 220 MG
     Route: 048
     Dates: start: 20091001, end: 20091023
  2. LEVEMIR [Concomitant]
     Route: 065
  3. ACTOS [Concomitant]
     Route: 065
  4. SYNTHROID [Concomitant]
     Route: 065
  5. HYDROCHLORZED [Concomitant]
     Route: 065
  6. CELEXA [Concomitant]
     Route: 065
  7. EFFEXOR [Concomitant]
     Route: 065

REACTIONS (2)
  - DIARRHOEA [None]
  - NAUSEA [None]
